FAERS Safety Report 10439608 (Version 1)
Quarter: 2014Q3

REPORT INFORMATION
  Report Type: Spontaneous
  Country: US (occurrence: US)
  Receive Date: 20140908
  Receipt Date: 20140908
  Transmission Date: 20150326
  Serious: Yes (Other)
  Sender: FDA-Public Use
  Company Number: US-BRISTOL-MYERS SQUIBB COMPANY-20637286

PATIENT
  Age: 70 Year
  Sex: Female

DRUGS (2)
  1. BENZTROPINE [Concomitant]
     Active Substance: BENZTROPINE
  2. ABILIFY [Suspect]
     Active Substance: ARIPIPRAZOLE
     Indication: BIPOLAR DISORDER
     Route: 048

REACTIONS (5)
  - Muscle twitching [Recovering/Resolving]
  - Transient ischaemic attack [Unknown]
  - Somnolence [Recovered/Resolved]
  - Dyskinesia [Recovering/Resolving]
  - Glucose tolerance impaired [Unknown]
